FAERS Safety Report 19097426 (Version 1)
Quarter: 2021Q2

REPORT INFORMATION
  Report Type: Spontaneous
  Country: US (occurrence: US)
  Receive Date: 20210406
  Receipt Date: 20210406
  Transmission Date: 20210717
  Serious: No
  Sender: FDA-Public Use
  Company Number: None

PATIENT
  Age: 71 Year
  Sex: Male

DRUGS (1)
  1. MAVYRET [Suspect]
     Active Substance: GLECAPREVIR\PIBRENTASVIR
     Dosage: ?          OTHER DOSE:100?40 MG;?
     Route: 048
     Dates: start: 202103

REACTIONS (3)
  - Nodule [None]
  - Blood pressure increased [None]
  - Rash [None]

NARRATIVE: CASE EVENT DATE: 20210309
